FAERS Safety Report 14998874 (Version 1)
Quarter: 2018Q2

REPORT INFORMATION
  Report Type: Spontaneous
  Country: DE (occurrence: DE)
  Receive Date: 20180612
  Receipt Date: 20180612
  Transmission Date: 20180711
  Serious: Yes (Hospitalization)
  Sender: FDA-Public Use
  Company Number: DE-TEVA-2018-DE-905585

PATIENT
  Age: 82 Year
  Sex: Male

DRUGS (10)
  1. SIMVASTATIN. [Concomitant]
     Active Substance: SIMVASTATIN
     Dosage: 20 MILLIGRAM DAILY;  0-0-1-0
  2. PANTOPRAZOL [Concomitant]
     Active Substance: PANTOPRAZOLE SODIUM
     Dosage: 40 MILLIGRAM DAILY;  1-0-0-0
  3. RAMIPRIL. [Concomitant]
     Active Substance: RAMIPRIL
     Dosage: 2.5 MILLIGRAM DAILY;  1-0-0-0
  4. FLUOROURACIL. [Suspect]
     Active Substance: FLUOROURACIL
     Dosage: NK MG, NK
     Route: 065
  5. PLAVIX [Concomitant]
     Active Substance: CLOPIDOGREL BISULFATE
     Dosage: 75 MILLIGRAM DAILY;  1-0-0-0
     Route: 065
  6. ISOKET [Concomitant]
     Active Substance: ISOSORBIDE DINITRATE
     Dosage: 40 MILLIGRAM DAILY; 1-0-0-0
  7. ACETYLSALICYLS?URE [Concomitant]
     Active Substance: ASPIRIN
     Dosage: 100 MILLIGRAM DAILY;  0-1-0-0
  8. IRINOTECAN [Suspect]
     Active Substance: IRINOTECAN
     Dosage: NK MG, NK
     Route: 065
  9. METOPROLOL. [Concomitant]
     Active Substance: METOPROLOL
     Dosage: 25 MILLIGRAM DAILY; 0.5-0-0-0
  10. LEVOTHYROXIN [Concomitant]
     Active Substance: LEVOTHYROXINE
     Dosage: 50 MICROGRAM DAILY;  1-0-0-0

REACTIONS (3)
  - Pyrexia [Unknown]
  - Vomiting [Unknown]
  - General physical health deterioration [Unknown]
